FAERS Safety Report 4367416-3 (Version None)
Quarter: 2004Q2

REPORT INFORMATION
  Report Type: 
  Country: None (occurrence: None)
  Receive Date: 20040528
  Receipt Date: 20040528
  Transmission Date: 20050107
  Serious: Yes (Hospitalization)
  Sender: FDA-Public Use
  Company Number: None

PATIENT
  Age: 65 Year
  Sex: Male
  Weight: 78 kg

DRUGS (6)
  1. FUDR [Suspect]
     Indication: GASTRIC CANCER
     Dosage: 3 GM QD X 3 DAYS IP
     Route: 033
     Dates: start: 20040518, end: 20040520
  2. CISPLATIN [Suspect]
     Dosage: 116 MG IP ON DAY 3
     Route: 033
     Dates: start: 20040520
  3. KYTRIL [Concomitant]
  4. BENADRYL [Concomitant]
  5. DECADRON [Concomitant]
  6. ATENOLOL [Concomitant]

REACTIONS (5)
  - BLOOD CREATINE PHOSPHOKINASE INCREASED [None]
  - CHEST PAIN [None]
  - ELECTROCARDIOGRAM QT PROLONGED [None]
  - PAIN IN EXTREMITY [None]
  - TROPONIN INCREASED [None]
